FAERS Safety Report 5161402-1 (Version None)
Quarter: 2006Q4

REPORT INFORMATION
  Report Type: 
  Country: None (occurrence: None)
  Receive Date: 20061130
  Receipt Date: 20061124
  Transmission Date: 20070319
  Serious: Yes (Other)
  Sender: FDA-Public Use
  Company Number: JP-ROCHE-472688

PATIENT
  Age: 62 Year
  Sex: Male

DRUGS (2)
  1. PEGASYS [Suspect]
     Indication: HEPATITIS C
     Route: 058
     Dates: start: 20051227, end: 20060912
  2. PURSENNID [Concomitant]
     Route: 048

REACTIONS (1)
  - RETINAL DETACHMENT [None]
